FAERS Safety Report 7625396-9 (Version None)
Quarter: 2011Q3

REPORT INFORMATION
  Report Type: 
  Country: None (occurrence: None)
  Receive Date: 20110721
  Receipt Date: 20110711
  Transmission Date: 20111222
  Serious: Yes (Other)
  Sender: FDA-Public Use
  Company Number: US-BAYER-201034540NA

PATIENT
  Age: 51 Year
  Sex: Female
  Weight: 65.76 kg

DRUGS (9)
  1. AMBIEN [Concomitant]
  2. PROTONIX [Concomitant]
  3. TRAZODONE HCL [Concomitant]
  4. LORAZEPAM [Concomitant]
  5. HYOSCYAMINE [Concomitant]
  6. YASMIN [Suspect]
     Indication: PRODUCT USED FOR UNKNOWN INDICATION
     Dosage: UNK UNK, UNK
     Route: 048
     Dates: start: 20030101, end: 20060101
  7. EFFEXOR XR [Concomitant]
  8. BUSPAR [Concomitant]
  9. DARVOCET-N 50 [Concomitant]
     Indication: PAIN

REACTIONS (4)
  - GALLBLADDER DISORDER [None]
  - BILIARY DYSKINESIA [None]
  - PULMONARY EMBOLISM [None]
  - DEEP VEIN THROMBOSIS [None]
